FAERS Safety Report 8457508-1 (Version None)
Quarter: 2012Q2

REPORT INFORMATION
  Report Type: 
  Country: None (occurrence: None)
  Receive Date: 20120622
  Receipt Date: 20120619
  Transmission Date: 20120825
  Serious: Yes (Other)
  Sender: FDA-Public Use
  Company Number: US-AMGEN-USASP2012037968

PATIENT
  Sex: Female

DRUGS (4)
  1. PROLIA [Suspect]
     Indication: OSTEOPOROSIS POSTMENOPAUSAL
     Dates: start: 20120401
  2. NEXIUM [Concomitant]
  3. VESICARE [Concomitant]
  4. TRAMADOL HCL [Concomitant]

REACTIONS (10)
  - INTESTINAL PROLAPSE [None]
  - BACK PAIN [None]
  - PAIN IN EXTREMITY [None]
  - RASH [None]
  - DYSURIA [None]
  - WEIGHT DECREASED [None]
  - NAUSEA [None]
  - NIGHT SWEATS [None]
  - MIDDLE INSOMNIA [None]
  - FEELING HOT [None]
